FAERS Safety Report 6251386-7 (Version None)
Quarter: 2009Q2

REPORT INFORMATION
  Report Type: 
  Country: None (occurrence: None)
  Receive Date: 20090630
  Receipt Date: 20090624
  Transmission Date: 20091009
  Serious: Yes (Life-Threatening)
  Sender: FDA-Public Use
  Company Number: B0580830A

PATIENT
  Sex: Female

DRUGS (4)
  1. RANIPLEX [Suspect]
     Indication: PREMEDICATION
     Route: 048
     Dates: start: 20090316, end: 20090316
  2. POLARAMINE [Concomitant]
     Indication: PREMEDICATION
     Route: 065
     Dates: start: 20090316, end: 20090316
  3. HERCEPTIN [Concomitant]
     Route: 065
     Dates: start: 20090223
  4. AROMASIN [Concomitant]
     Dosage: 25MG PER DAY
     Route: 065
     Dates: start: 20090201

REACTIONS (3)
  - LACRIMATION INCREASED [None]
  - NASAL CONGESTION [None]
  - THROAT IRRITATION [None]
